FAERS Safety Report 9789968 (Version 4)
Quarter: 2014Q1

REPORT INFORMATION
  Report Type: Spontaneous
  Country: JP (occurrence: None)
  Receive Date: 20131227
  Receipt Date: 20140311
  Transmission Date: 20141002
  Serious: Yes (Other)
  Sender: FDA-Public Use
  Company Number: 2013CP000159

PATIENT
  Age: 56 Year
  Sex: Female
  Weight: 41.36 kg

DRUGS (8)
  1. ACELIO [Suspect]
     Indication: PAIN MANAGEMENT
     Route: 042
     Dates: start: 20131203, end: 20131205
  2. BFLUID [Concomitant]
  3. SOLDEM 3A [Concomitant]
  4. VITAMIN C [Concomitant]
  5. THIAMINE DISULFIDE PHOSPHATE [Concomitant]
  6. TAKEPRON [Concomitant]
  7. PRIMPERAN [Concomitant]
  8. TIEPENEM [Concomitant]

REACTIONS (13)
  - Convulsion [None]
  - Altered state of consciousness [None]
  - Anaemia [None]
  - Blood electrolytes decreased [None]
  - Hepatic function abnormal [None]
  - Incoherent [None]
  - Memory impairment [None]
  - Hyperhidrosis [None]
  - Aphasia [None]
  - Heart rate increased [None]
  - Oxygen saturation decreased [None]
  - Blood pressure decreased [None]
  - Apnoea [None]
